FAERS Safety Report 12627903 (Version 1)
Quarter: 2016Q3

REPORT INFORMATION
  Report Type: Spontaneous
  Country: IT (occurrence: IT)
  Receive Date: 20160807
  Receipt Date: 20160807
  Transmission Date: 20161109
  Serious: Yes (Other)
  Sender: FDA-Public Use
  Company Number: IT-TEVA-681325ACC

PATIENT
  Age: 79 Year
  Sex: Female

DRUGS (2)
  1. NIFEDIPINE. [Suspect]
     Active Substance: NIFEDIPINE
     Indication: MORPHOEA
     Dosage: 30 MILLIGRAM DAILY;
  2. ILOPROST [Suspect]
     Active Substance: ILOPROST
     Indication: MORPHOEA
     Route: 042

REACTIONS (2)
  - Drug ineffective for unapproved indication [Unknown]
  - Skin ulcer [Unknown]
